FAERS Safety Report 6417146-9 (Version None)
Quarter: 2009Q4

REPORT INFORMATION
  Report Type: 
  Country: None (occurrence: None)
  Receive Date: 20091028
  Receipt Date: 20091019
  Transmission Date: 20100525
  Serious: Yes (Death, Hospitalization)
  Sender: FDA-Public Use
  Company Number: US-JNJFOC-20091006388

PATIENT
  Sex: Female

DRUGS (2)
  1. REMICADE [Suspect]
     Dosage: SECOND INFUSION
     Route: 042
  2. REMICADE [Suspect]
     Indication: RHEUMATOID ARTHRITIS
     Dosage: FIRST INFUSION
     Route: 042

REACTIONS (5)
  - BLINDNESS [None]
  - DEATH [None]
  - DYSGEUSIA [None]
  - HOSPITALISATION [None]
  - INFUSION RELATED REACTION [None]
